FAERS Safety Report 13709169 (Version 1)
Quarter: 2017Q2

REPORT INFORMATION
  Report Type: Spontaneous
  Country: US (occurrence: US)
  Receive Date: 20170630
  Receipt Date: 20170630
  Transmission Date: 20170830
  Serious: Yes (Hospitalization)
  Sender: FDA-Public Use
  Company Number: None

PATIENT
  Age: 59 Year
  Sex: Male
  Weight: 94.5 kg

DRUGS (1)
  1. HUMIRA [Suspect]
     Active Substance: ADALIMUMAB
     Indication: RHEUMATOID ARTHRITIS
     Dosage: ?          OTHER DOSE:MG;OTHER FREQUENCY:EVERY TWO WEEKS;?
     Route: 058
     Dates: start: 20140814

REACTIONS (1)
  - Myocardial infarction [None]

NARRATIVE: CASE EVENT DATE: 20170521
